FAERS Safety Report 8224876-5 (Version None)
Quarter: 2012Q1

REPORT INFORMATION
  Report Type: 
  Country: None (occurrence: None)
  Receive Date: 20120319
  Receipt Date: 20120309
  Transmission Date: 20120608
  Serious: Yes (Death, Hospitalization)
  Sender: FDA-Public Use
  Company Number: WAES 1202USA02882

PATIENT
  Age: 63 Year
  Sex: Female

DRUGS (12)
  1. PANTETHINE [Concomitant]
  2. LIPITOR [Concomitant]
  3. LANTUS [Concomitant]
  4. ALLEGRA [Concomitant]
  5. DIFLUCAN [Concomitant]
  6. NOVORAPID [Concomitant]
  7. RABEPRAZOLE SODIUM [Concomitant]
  8. ZOLINZA [Suspect]
     Indication: MYCOSIS FUNGOIDES
     Dosage: 400 MG/DAILY 300 MG/DAILY
     Route: 048
     Dates: start: 20111110, end: 20111121
  9. ZOLINZA [Suspect]
     Indication: MYCOSIS FUNGOIDES
     Dosage: 400 MG/DAILY 300 MG/DAILY
     Route: 048
     Dates: start: 20111129, end: 20111201
  10. ZOLINZA [Suspect]
     Indication: MYCOSIS FUNGOIDES
     Dosage: 400 MG/DAILY 300 MG/DAILY
     Route: 048
     Dates: start: 20120102, end: 20120114
  11. ZOLINZA [Suspect]
     Indication: MYCOSIS FUNGOIDES
     Dosage: 400 MG/DAILY 300 MG/DAILY
     Route: 048
     Dates: start: 20111208, end: 20111226
  12. MAGLAX (MAGNESIUM OXIDE) [Concomitant]

REACTIONS (11)
  - DECREASED APPETITE [None]
  - EOSINOPHILIC PNEUMONIA ACUTE [None]
  - PAROTITIS [None]
  - NAUSEA [None]
  - ASPARTATE AMINOTRANSFERASE INCREASED [None]
  - CONSTIPATION [None]
  - DEEP VEIN THROMBOSIS [None]
  - PLEURAL EFFUSION [None]
  - ALANINE AMINOTRANSFERASE INCREASED [None]
  - GENERAL PHYSICAL HEALTH DETERIORATION [None]
  - VOMITING [None]
